FAERS Safety Report 19263850 (Version 1)
Quarter: 2021Q2

REPORT INFORMATION
  Report Type: Spontaneous
  Country: US (occurrence: US)
  Receive Date: 20210514
  Receipt Date: 20210514
  Transmission Date: 20210717
  Serious: Yes (Other)
  Sender: FDA-Public Use
  Company Number: None

PATIENT
  Age: 74 Year
  Sex: Male
  Weight: 76.5 kg

DRUGS (1)
  1. THERATEARS [Suspect]
     Active Substance: CARBOXYMETHYLCELLULOSE SODIUM
     Indication: DRY EYE
     Dosage: ?          QUANTITY:1 DROP(S);?
     Route: 047
     Dates: start: 20201222, end: 20201222

REACTIONS (5)
  - Ocular hyperaemia [None]
  - Eyelid disorder [None]
  - Periorbital swelling [None]
  - Rash [None]
  - Eye pruritus [None]

NARRATIVE: CASE EVENT DATE: 20201222
